FAERS Safety Report 24365011 (Version 1)
Quarter: 2024Q3

REPORT INFORMATION
  Report Type: Report from Study
  Country: US (occurrence: US)
  Receive Date: 20240926
  Receipt Date: 20240926
  Transmission Date: 20241016
  Serious: Yes (Hospitalization)
  Sender: TAKEDA
  Company Number: US-TAKEDA-2024TUS093914

PATIENT
  Sex: Female

DRUGS (4)
  1. TEDUGLUTIDE [Suspect]
     Active Substance: TEDUGLUTIDE
     Indication: Product used for unknown indication
     Dosage: 0.29 MILLILITER, QD
     Route: 058
     Dates: start: 20191101
  2. TEDUGLUTIDE [Suspect]
     Active Substance: TEDUGLUTIDE
     Indication: Product used for unknown indication
     Dosage: 0.29 MILLILITER, QD
     Route: 058
     Dates: start: 20191101
  3. TEDUGLUTIDE [Suspect]
     Active Substance: TEDUGLUTIDE
     Indication: Product used for unknown indication
     Dosage: 0.29 MILLILITER, QD
     Route: 058
     Dates: start: 20191101
  4. TEDUGLUTIDE [Suspect]
     Active Substance: TEDUGLUTIDE
     Indication: Product used for unknown indication
     Dosage: 0.29 MILLILITER, QD
     Route: 058
     Dates: start: 20191101

REACTIONS (3)
  - Gastrointestinal disorder [Unknown]
  - Malaise [Unknown]
  - Weight decreased [Unknown]
